FAERS Safety Report 9402820 (Version 1)
Quarter: 2013Q3

REPORT INFORMATION
  Report Type: Spontaneous
  Country: US (occurrence: None)
  Receive Date: 20130715
  Receipt Date: 20130715
  Transmission Date: 20140515
  Serious: Yes (Other)
  Sender: FDA-Public Use
  Company Number: None

PATIENT
  Age: 42 Year
  Sex: Female
  Weight: 78.02 kg

DRUGS (1)
  1. LEVOFLOXACIN [Suspect]
     Indication: SINUSITIS
     Route: 048
     Dates: start: 20130626, end: 20130704

REACTIONS (6)
  - Tendon pain [None]
  - Paraesthesia [None]
  - Pain in extremity [None]
  - Neck pain [None]
  - Musculoskeletal pain [None]
  - Muscle tightness [None]
